FAERS Safety Report 9228136 (Version 1)
Quarter: 2013Q2

REPORT INFORMATION
  Report Type: Report from Study
  Country: ES (occurrence: ES)
  Receive Date: 20130412
  Receipt Date: 20130412
  Transmission Date: 20140414
  Serious: Yes (Other)
  Sender: FDA-Public Use
  Company Number: ES-ROCHE-1209034

PATIENT
  Sex: 0

DRUGS (2)
  1. TENECTEPLASE [Suspect]
     Indication: ACUTE MYOCARDIAL INFARCTION
     Route: 065
  2. UNFRACTIONATED HEPARIN [Suspect]
     Indication: ACUTE MYOCARDIAL INFARCTION
     Dosage: 70 U/KG AS BOLU FOLLOWED BY CONTINUOUS INFUSION OF 1000 U/H
     Route: 065

REACTIONS (1)
  - Coronary artery occlusion [Recovered/Resolved]
